FAERS Safety Report 11837337 (Version 2)
Quarter: 2016Q1

REPORT INFORMATION
  Report Type: Spontaneous
  Country: None (occurrence: US)
  Receive Date: 20151215
  Receipt Date: 20160126
  Transmission Date: 20160525
  Serious: No
  Sender: FDA-Public Use
  Company Number: US-RARE DISEASE THERAPEUTICS, INC.-1045508

PATIENT
  Age: 32 Year
  Sex: Male
  Weight: 43.2 kg

DRUGS (18)
  1. LEVALBUTEROL. [Concomitant]
     Active Substance: LEVALBUTEROL
  2. LEVETIRACETAM. [Concomitant]
     Active Substance: LEVETIRACETAM
  3. XYSAL [Concomitant]
  4. FURADANTIN [Concomitant]
     Active Substance: NITROFURANTOIN
  5. DOCUSATE [Concomitant]
     Active Substance: DOCUSATE
  6. MIRALAX [Concomitant]
     Active Substance: POLYETHYLENE GLYCOL 3350
  7. DIAZEPAM. [Concomitant]
     Active Substance: DIAZEPAM
  8. NASONEX [Concomitant]
     Active Substance: MOMETASONE FUROATE
  9. RANITIDINE [Concomitant]
     Active Substance: RANITIDINE\RANITIDINE HYDROCHLORIDE
  10. CENTRUM [Concomitant]
     Active Substance: VITAMINS
  11. CYSTADANE [Suspect]
     Active Substance: BETAINE
     Indication: METHYLMALONIC ACIDURIA
     Route: 048
     Dates: start: 20140729
  12. SINGULAIR [Concomitant]
     Active Substance: MONTELUKAST SODIUM
  13. SENNA LAXATIVE [Concomitant]
     Active Substance: SENNOSIDES
  14. VITAMIN B12 [Concomitant]
     Active Substance: CYANOCOBALAMIN
  15. DILTIAZEM [Concomitant]
     Active Substance: DILTIAZEM
  16. BACLOFEN. [Concomitant]
     Active Substance: BACLOFEN
  17. BUDESONIDE. [Concomitant]
     Active Substance: BUDESONIDE
  18. FOLIC ACID. [Concomitant]
     Active Substance: FOLIC ACID

REACTIONS (3)
  - Off label use [None]
  - Urinary tract infection [None]
  - Neurogenic bladder [None]
